FAERS Safety Report 11336462 (Version 2)
Quarter: 2015Q3

REPORT INFORMATION
  Report Type: Spontaneous
  Country: FR (occurrence: FR)
  Receive Date: 20150804
  Receipt Date: 20150921
  Transmission Date: 20151125
  Serious: Yes (Hospitalization, Other)
  Sender: FDA-Public Use
  Company Number: FR-JNJFOC-20150715035

PATIENT
  Age: 43 Year
  Sex: Male
  Weight: 99 kg

DRUGS (14)
  1. GSK1605786A [Suspect]
     Active Substance: VERCIRNON SODIUM
     Indication: CROHN^S DISEASE
     Route: 065
     Dates: start: 20131220
  2. GSK1605786A [Suspect]
     Active Substance: VERCIRNON SODIUM
     Indication: CROHN^S DISEASE
     Route: 065
     Dates: start: 20091028, end: 20091221
  3. TACROLIMUS. [Suspect]
     Active Substance: TACROLIMUS
     Indication: CROHN^S DISEASE
     Route: 048
     Dates: start: 20141127, end: 201503
  4. HYDROCORTISONE. [Concomitant]
     Active Substance: HYDROCORTISONE
     Indication: PROPHYLAXIS
     Route: 065
     Dates: start: 20141115
  5. OROCAL D3 [Concomitant]
     Active Substance: CALCIUM CARBONATE\CHOLECALCIFEROL
     Indication: OSTEOPOROSIS PROPHYLAXIS
     Route: 065
     Dates: start: 20131127
  6. HUMIRA [Suspect]
     Active Substance: ADALIMUMAB
     Indication: PRODUCT USED FOR UNKNOWN INDICATION
     Route: 065
     Dates: start: 201005, end: 201107
  7. METHOTREXATE SODIUM. [Suspect]
     Active Substance: METHOTREXATE SODIUM
     Indication: PRODUCT USED FOR UNKNOWN INDICATION
     Route: 065
     Dates: start: 201305, end: 201308
  8. CIMZIA [Suspect]
     Active Substance: CERTOLIZUMAB PEGOL
     Indication: PRODUCT USED FOR UNKNOWN INDICATION
     Route: 065
     Dates: start: 200605, end: 200705
  9. USTEKINUMAB [Suspect]
     Active Substance: USTEKINUMAB
     Indication: PRODUCT USED FOR UNKNOWN INDICATION
     Route: 058
     Dates: start: 201209, end: 201304
  10. GSK1605786A [Suspect]
     Active Substance: VERCIRNON SODIUM
     Indication: CROHN^S DISEASE
     Route: 065
  11. REMICADE [Suspect]
     Active Substance: INFLIXIMAB
     Indication: PRODUCT USED FOR UNKNOWN INDICATION
     Route: 042
     Dates: start: 200706, end: 201003
  12. GSK1605786A [Suspect]
     Active Substance: VERCIRNON SODIUM
     Indication: CROHN^S DISEASE
     Route: 065
     Dates: start: 20131127
  13. IMUREL [Suspect]
     Active Substance: AZATHIOPRINE SODIUM
     Indication: PRODUCT USED FOR UNKNOWN INDICATION
     Route: 065
     Dates: start: 200511, end: 200904
  14. GSK1605786A [Suspect]
     Active Substance: VERCIRNON SODIUM
     Indication: CROHN^S DISEASE
     Route: 065
     Dates: start: 20120120, end: 20120607

REACTIONS (5)
  - Drug ineffective [Unknown]
  - Adenocarcinoma of colon [Unknown]
  - Basal cell carcinoma [Unknown]
  - Arthritis [Unknown]
  - Inguinal hernia [Recovered/Resolved]

NARRATIVE: CASE EVENT DATE: 20080801
